FAERS Safety Report 9942314 (Version 3)
Quarter: 2014Q1

REPORT INFORMATION
  Report Type: Report from Study
  Country: NL (occurrence: NL)
  Receive Date: 20140303
  Receipt Date: 20140314
  Transmission Date: 20141002
  Serious: Yes (Hospitalization)
  Sender: FDA-Public Use
  Company Number: PHHY2014NL011926

PATIENT
  Age: 82 Year
  Sex: Female

DRUGS (3)
  1. SANDOSTATIN LAR [Suspect]
     Dosage: 30 MG PER 2 ML, ONCE EVERY 3 WEEKS
     Route: 030
  2. SANDOSTATIN LAR [Suspect]
     Dosage: 30 MG PER 2 ML,ONCE EVERY 3 WEEKS
     Dates: start: 20140203
  3. SANDOSTATIN LAR [Suspect]
     Dosage: 30 MG PER 2 ML,ONCE EVERY 3 WEEKS
     Dates: start: 20140311

REACTIONS (2)
  - Pyrexia [Not Recovered/Not Resolved]
  - Pneumonia [Recovering/Resolving]
